FAERS Safety Report 5106953-0 (Version None)
Quarter: 2006Q3

REPORT INFORMATION
  Report Type: 
  Country: None (occurrence: None)
  Receive Date: 20060913
  Receipt Date: 20060825
  Transmission Date: 20061208
  Serious: Yes (Hospitalization)
  Sender: FDA-Public Use
  Company Number: FR200602000598

PATIENT
  Age: 58 Year
  Sex: Male
  Weight: 56 kg

DRUGS (2)
  1. CIALIS [Suspect]
     Dosage: 20 MG, ORAL
     Route: 048
     Dates: start: 20051201
  2. CITALOPRAM HYDROBROMIDE [Concomitant]

REACTIONS (1)
  - INTESTINAL OBSTRUCTION [None]
